FAERS Safety Report 6609030-2 (Version None)
Quarter: 2010Q1

REPORT INFORMATION
  Report Type: 
  Country: None (occurrence: None)
  Receive Date: 20100301
  Receipt Date: 20100218
  Transmission Date: 20100710
  Serious: Yes (Hospitalization)
  Sender: FDA-Public Use
  Company Number: DE-ELI_LILLY_AND_COMPANY-DE201002005222

PATIENT
  Age: 43 Year
  Sex: Female

DRUGS (13)
  1. ZYPREXA [Suspect]
     Indication: SCHIZOPHRENIA, PARANOID TYPE
     Dosage: 10 MG, UNK
     Route: 048
     Dates: start: 20090702, end: 20090702
  2. ZYPREXA [Suspect]
     Dosage: 20 MG, UNK
     Route: 048
     Dates: start: 20090703, end: 20090708
  3. ZYPREXA [Suspect]
     Dosage: 30 MG, UNK
     Route: 048
     Dates: start: 20090709, end: 20090710
  4. ZYPREXA [Suspect]
     Dosage: 20 MG, UNK
     Route: 048
     Dates: start: 20090711, end: 20090712
  5. ZYPREXA [Suspect]
     Dosage: 25 MG, UNK
     Route: 048
     Dates: start: 20090713, end: 20090701
  6. ZYPREXA [Suspect]
     Dosage: 20 MG, UNK
     Route: 048
     Dates: start: 20090701, end: 20090716
  7. TAVOR [Concomitant]
     Dosage: 6 MG, UNK
     Route: 048
     Dates: start: 20090704, end: 20090707
  8. TAVOR [Concomitant]
     Dosage: 4 MG, UNK
     Route: 048
     Dates: start: 20090708, end: 20090731
  9. TAVOR [Concomitant]
     Dosage: 1 MG, UNK
     Route: 048
     Dates: start: 20090801, end: 20090805
  10. TAVOR [Concomitant]
     Dosage: 6 MG, UNK
     Route: 048
     Dates: start: 20090806
  11. RISPERIDONE [Concomitant]
     Dosage: 4 MG, UNK
     Route: 048
     Dates: start: 20090709, end: 20090713
  12. RISPERIDONE [Concomitant]
     Dosage: 50 MG, UNK
     Route: 030
     Dates: start: 20090701, end: 20090701
  13. RISPERIDONE [Concomitant]
     Dosage: 50 MG, UNK
     Route: 030
     Dates: start: 20090715

REACTIONS (3)
  - BONE MARROW TOXICITY [None]
  - LEUKOPENIA [None]
  - NEUTROPENIA [None]
